FAERS Safety Report 22071655 (Version 2)
Quarter: 2023Q1

REPORT INFORMATION
  Report Type: Spontaneous
  Country: CO (occurrence: CO)
  Receive Date: 20230307
  Receipt Date: 20230323
  Transmission Date: 20230418
  Serious: Yes (Life-Threatening)
  Sender: FDA-Public Use
  Company Number: CO-BIOMARINAP-CO-2023-148975

PATIENT

DRUGS (1)
  1. VIMIZIM [Suspect]
     Active Substance: ELOSULFASE ALFA
     Indication: Mucopolysaccharidosis IV
     Dosage: 48 MILLIGRAM, QW
     Route: 042
     Dates: start: 201411

REACTIONS (2)
  - Respiratory distress [Not Recovered/Not Resolved]
  - Oxygen saturation abnormal [Not Recovered/Not Resolved]

NARRATIVE: CASE EVENT DATE: 20230301
